FAERS Safety Report 22239126 (Version 1)
Quarter: 2023Q2

REPORT INFORMATION
  Report Type: Spontaneous
  Country: US (occurrence: None)
  Receive Date: 20230419
  Receipt Date: 20230419
  Transmission Date: 20230722
  Serious: No
  Sender: FDA-Public Use
  Company Number: None

PATIENT
  Age: 67 Year
  Sex: Female
  Weight: 74.3 kg

DRUGS (26)
  1. LENALIDOMIDE [Suspect]
     Active Substance: LENALIDOMIDE
     Indication: Plasma cell myeloma
     Dosage: OTHER FREQUENCY : 3W, 1W OFF;?
     Route: 048
  2. ACYCLOVIR [Concomitant]
     Active Substance: ACYCLOVIR
  3. ALBUTEROL SULFATE [Concomitant]
     Active Substance: ALBUTEROL SULFATE
  4. AMLODIPINE [Concomitant]
     Active Substance: AMLODIPINE BESYLATE
  5. ASPIRIN [Concomitant]
     Active Substance: ASPIRIN
  6. BILBERRY [Concomitant]
     Active Substance: BILBERRY
  7. CLEARLAX [Concomitant]
     Active Substance: POLYETHYLENE GLYCOL 3350
  8. Copaiba Softgel [Concomitant]
  9. Digestive Probiotic [Concomitant]
  10. DECADRON [Concomitant]
     Active Substance: DEXAMETHASONE
  11. DEEP BLUE POLYPHENOL COMPLEX [Concomitant]
  12. UNSPECIFIED INGREDIENT [Concomitant]
     Active Substance: UNSPECIFIED INGREDIENT
  13. ESSENTIAL OILS [Concomitant]
     Active Substance: ESSENTIAL OILS
  14. Hydrocortisone External Cream [Concomitant]
  15. VITAMIN B12 [Concomitant]
     Active Substance: CYANOCOBALAMIN
  16. Mupirocin External Ointment [Concomitant]
  17. Ningxia Red [Concomitant]
  18. Oguard Doterra Softgel [Concomitant]
  19. Owyn Protein Shakes [Concomitant]
  20. OXYBUTYNIN CHLORIDE [Concomitant]
     Active Substance: OXYBUTYNIN CHLORIDE
  21. Refresh Ophthalmic Solution [Concomitant]
  22. Sacred  7 Mushroom Extract Powder [Concomitant]
  23. HERBALS\TURMERIC [Concomitant]
     Active Substance: HERBALS\TURMERIC
  24. VELCADE [Concomitant]
     Active Substance: BORTEZOMIB
  25. VITAMIN D2 [Concomitant]
     Active Substance: ERGOCALCIFEROL
  26. Zeasorb External Powder [Concomitant]

REACTIONS (2)
  - Oxygen saturation decreased [None]
  - Therapy interrupted [None]
